FAERS Safety Report 4687528-4 (Version None)
Quarter: 2005Q2

REPORT INFORMATION
  Report Type: 
  Country: None (occurrence: None)
  Receive Date: 20050608
  Receipt Date: 20050608
  Transmission Date: 20051028
  Serious: Yes (Other)
  Sender: FDA-Public Use
  Company Number: None

PATIENT
  Age: 58 Year
  Sex: Male
  Weight: 70.3075 kg

DRUGS (10)
  1. PEGASYS [Suspect]
     Indication: HEPATITIS C VIRUS
     Dosage: 360MG    Q WEEK    SUBCUTANEO
     Route: 058
     Dates: start: 20040422, end: 20050204
  2. ASPIRIN [Concomitant]
  3. ATENOLOL [Concomitant]
  4. COLCHICINE [Concomitant]
  5. FELODIPINE [Concomitant]
  6. FOSINOPRIL SODIUM [Concomitant]
  7. HYDROCORTISONE [Concomitant]
  8. MOISTURIZING LOTION [Concomitant]
  9. MULTI-VITAMIN [Concomitant]
  10. RIBAVIRIN [Concomitant]

REACTIONS (2)
  - ALOPECIA [None]
  - PRURITUS [None]
